FAERS Safety Report 4313883-0 (Version None)
Quarter: 2004Q1

REPORT INFORMATION
  Report Type: 
  Country: None (occurrence: None)
  Receive Date: 20040302
  Receipt Date: 20031124
  Transmission Date: 20041129
  Serious: Yes (Disabling)
  Sender: FDA-Public Use
  Company Number: 002#4#2003-00553-(0)

PATIENT
  Sex: Female

DRUGS (1)
  1. REGLAN [Suspect]
     Dosage: ORAL
     Route: 048
     Dates: start: 20021101

REACTIONS (3)
  - DEPRESSION [None]
  - DYSKINESIA [None]
  - EXTRAPYRAMIDAL DISORDER [None]
